FAERS Safety Report 9507549 (Version 2)
Quarter: 2013Q4

REPORT INFORMATION
  Report Type: Spontaneous
  Country: SG (occurrence: SG)
  Receive Date: 20130909
  Receipt Date: 20131111
  Transmission Date: 20140711
  Serious: Yes (Death, Hospitalization)
  Sender: FDA-Public Use
  Company Number: SG-CELGENEUS-141-21880-13090003

PATIENT
  Age: 77 Year
  Sex: Male

DRUGS (3)
  1. REVLIMID [Suspect]
     Indication: ACUTE MYELOID LEUKAEMIA
     Dosage: 10 MILLIGRAM
     Route: 048
     Dates: start: 20130715, end: 20130731
  2. AZACITIDINE [Concomitant]
     Indication: MYELODYSPLASTIC SYNDROME
     Route: 058
     Dates: start: 20130715, end: 20130719
  3. AZACITIDINE [Concomitant]
     Indication: ACUTE MYELOID LEUKAEMIA

REACTIONS (3)
  - Febrile neutropenia [Unknown]
  - Acute myeloid leukaemia [Fatal]
  - Pneumonia [Fatal]
